FAERS Safety Report 20291727 (Version 1)
Quarter: 2022Q1

REPORT INFORMATION
  Report Type: Spontaneous
  Country: US (occurrence: None)
  Receive Date: 20220104
  Receipt Date: 20220104
  Transmission Date: 20220423
  Serious: Yes (Hospitalization)
  Sender: FDA-Public Use
  Company Number: None

PATIENT
  Sex: Female
  Weight: 99.6 kg

DRUGS (3)
  1. CISPLATIN [Suspect]
     Active Substance: CISPLATIN
  2. ETOPOSIDE (VP-16) [Concomitant]
  3. BLEOMYCIN [Concomitant]

REACTIONS (6)
  - Vomiting [None]
  - Oropharyngeal pain [None]
  - Vomiting [None]
  - Mucosal inflammation [None]
  - Blood magnesium decreased [None]
  - Discoloured vomit [None]

NARRATIVE: CASE EVENT DATE: 20211227
